FAERS Safety Report 5455068-0 (Version None)
Quarter: 2007Q3

REPORT INFORMATION
  Report Type: 
  Country: None (occurrence: None)
  Receive Date: 20070913
  Receipt Date: 20070823
  Transmission Date: 20080115
  Serious: Yes (Hospitalization)
  Sender: FDA-Public Use
  Company Number: 6037321

PATIENT
  Age: 58 Year
  Sex: Female

DRUGS (2)
  1. CLARITHROMYCIN [Suspect]
     Indication: PNEUMONIA
     Dosage: 500 MG (500 MG, 1 IN 1 D)
  2. ISRADIPINE [Suspect]
     Indication: HYPERTENSION
     Dosage: OVER TWO YEARS

REACTIONS (6)
  - ACUTE HEPATIC FAILURE [None]
  - DRUG INTERACTION INHIBITION [None]
  - HEPATIC ENCEPHALOPATHY [None]
  - HEPATIC NECROSIS [None]
  - HEPATOCELLULAR DAMAGE [None]
  - METABOLIC ACIDOSIS [None]
